FAERS Safety Report 24287677 (Version 1)
Quarter: 2024Q3

REPORT INFORMATION
  Report Type: Spontaneous
  Country: US (occurrence: US)
  Receive Date: 20240905
  Receipt Date: 20240905
  Transmission Date: 20241017
  Serious: No
  Sender: SPRINGWORKS THERAPEUTIC
  Company Number: US-SPRINGWORKS THERAPEUTICS-SW-001709

PATIENT
  Sex: Male

DRUGS (1)
  1. OGSIVEO [Suspect]
     Active Substance: NIROGACESTAT\NIROGACESTAT HYDROBROMIDE
     Indication: Desmoid tumour
     Dosage: 150 MILLIGRAM, BID

REACTIONS (3)
  - Disease progression [Unknown]
  - Drug resistance [Unknown]
  - Drug ineffective [Unknown]
